FAERS Safety Report 9258171 (Version 1)
Quarter: 2013Q2

REPORT INFORMATION
  Report Type: Spontaneous
  Country: US (occurrence: US)
  Receive Date: 20130426
  Receipt Date: 20130426
  Transmission Date: 20140414
  Serious: No
  Sender: FDA-Public Use
  Company Number: US-009507513-1304USA015924

PATIENT
  Age: 24 Year
  Sex: Female
  Weight: 95.24 kg

DRUGS (1)
  1. NUVARING [Suspect]
     Indication: CONTRACEPTION
     Dosage: 3 WEEKS IN, 1 WEEK OUT
     Route: 067
     Dates: start: 201210

REACTIONS (4)
  - Premenstrual syndrome [Not Recovered/Not Resolved]
  - Device expulsion [Unknown]
  - Product quality issue [Unknown]
  - Poor quality drug administered [Unknown]
